FAERS Safety Report 8859043 (Version 1)
Quarter: 2012Q4

REPORT INFORMATION
  Report Type: 
  Country: FR (occurrence: FR)
  Receive Date: 20121024
  Receipt Date: 20121024
  Transmission Date: 20130627
  Serious: Yes (Hospitalization)
  Sender: FDA-Public Use
  Company Number: FR-EISAI INC-E3810-05327-SPO-FR

PATIENT
  Age: 91 Year
  Sex: Male

DRUGS (11)
  1. PARIET (RABEPRAZOLE) [Suspect]
     Route: 048
     Dates: end: 20120731
  2. PRETERAX [Suspect]
     Indication: HYPERTENSION
     Route: 048
  3. LASIX [Suspect]
     Indication: HYPERTENSION
     Route: 048
  4. ZYLORIC [Suspect]
     Route: 048
  5. KARDEGIC [Suspect]
     Route: 048
  6. DIFFU K [Suspect]
     Route: 048
  7. BISOPROLOL [Concomitant]
     Route: 065
  8. ANANDRON [Concomitant]
     Route: 065
  9. TARDYFERON [Concomitant]
     Route: 065
  10. PLAVIX [Concomitant]
     Route: 065
  11. SMECTA [Concomitant]
     Route: 065

REACTIONS (2)
  - Hyponatraemia [Recovered/Resolved]
  - Malaise [Recovered/Resolved]
